FAERS Safety Report 4772762-5 (Version None)
Quarter: 2005Q3

REPORT INFORMATION
  Report Type: 
  Country: None (occurrence: None)
  Receive Date: 20050919
  Receipt Date: 20050907
  Transmission Date: 20060218
  Serious: Yes (Other)
  Sender: FDA-Public Use
  Company Number: US-GLAXOSMITHKLINE-A0574125A

PATIENT
  Age: 28 Year
  Sex: Female

DRUGS (3)
  1. LAMICTAL [Suspect]
     Indication: EPILEPSY
     Dosage: 125MG PER DAY
     Route: 048
     Dates: start: 20050608
  2. FOLIC ACID [Concomitant]
  3. DEPAKOTE [Concomitant]
     Indication: EPILEPSY
     Route: 048
     Dates: end: 20050713

REACTIONS (1)
  - ABORTION SPONTANEOUS [None]
